FAERS Safety Report 7502173-0 (Version None)
Quarter: 2011Q2

REPORT INFORMATION
  Report Type: 
  Country: None (occurrence: None)
  Receive Date: 20110525
  Receipt Date: 20110508
  Transmission Date: 20111010
  Serious: No
  Sender: FDA-Public Use
  Company Number: US-B.I. PHARMACEUTICALS,INC./RIDGEFIELD-2011-BP-12577BP

PATIENT
  Sex: Male

DRUGS (8)
  1. PRADAXA [Suspect]
     Indication: ATRIAL FIBRILLATION
     Dosage: 300 MG
     Route: 048
     Dates: start: 20110416
  2. HYDROXYZINE PAMOATE [Concomitant]
     Indication: CYSTITIS INTERSTITIAL
  3. BETOPTIC S [Concomitant]
     Indication: GLAUCOMA
  4. CRESTOR [Concomitant]
     Indication: BLOOD CHOLESTEROL INCREASED
     Dosage: 10 MG
  5. BUSPIRONE HCL [Concomitant]
     Indication: ANXIETY
     Dosage: 20 MG
  6. DILTIAZEM [Concomitant]
     Indication: CARDIAC DISORDER
     Dosage: 480 MG
  7. ASPIRIN [Concomitant]
     Indication: ATRIAL FIBRILLATION
     Dosage: 81 MG
  8. DIGOXIN [Concomitant]
     Indication: CARDIAC DISORDER
     Dosage: 0.125 MG

REACTIONS (3)
  - PRURITUS GENERALISED [None]
  - SKIN DISORDER [None]
  - PARAESTHESIA [None]
